FAERS Safety Report 6930153-2 (Version None)
Quarter: 2010Q3

REPORT INFORMATION
  Report Type: 
  Country: None (occurrence: None)
  Receive Date: 20100818
  Receipt Date: 20100810
  Transmission Date: 20110219
  Serious: No
  Sender: FDA-Public Use
  Company Number: US-PFIZER INC-2010066223

PATIENT
  Sex: Female

DRUGS (1)
  1. CHANTIX [Suspect]
     Indication: SMOKING CESSATION THERAPY
     Dosage: STARTER PACK AND 1MG CONTINUING PAKS
     Dates: start: 20090504, end: 20090729

REACTIONS (3)
  - AFFECTIVE DISORDER [None]
  - ANXIETY [None]
  - INSOMNIA [None]
